FAERS Safety Report 17262250 (Version 1)
Quarter: 2020Q1

REPORT INFORMATION
  Report Type: Spontaneous
  Country: US (occurrence: US)
  Receive Date: 20200113
  Receipt Date: 20200113
  Transmission Date: 20200409
  Serious: Yes (Other)
  Sender: FDA-Public Use
  Company Number: US-BAYER-2020-003569

PATIENT
  Age: 76 Year
  Sex: Female

DRUGS (2)
  1. MIRALAX [Suspect]
     Active Substance: POLYETHYLENE GLYCOL 3350
     Indication: GASTROINTESTINAL DISORDER
     Dosage: 17 G, BID
     Route: 048
  2. FIBRE [Concomitant]
     Dosage: UNK

REACTIONS (4)
  - Inappropriate schedule of product administration [None]
  - Abdominal pain lower [Unknown]
  - Rectal haemorrhage [Unknown]
  - Product prescribing issue [None]
